FAERS Safety Report 8534254 (Version 2)
Quarter: 2013Q4

REPORT INFORMATION
  Report Type: Report from Study
  Country: US (occurrence: US)
  Receive Date: 20120427
  Receipt Date: 20131001
  Transmission Date: 20140711
  Serious: Yes (Hospitalization, Other)
  Sender: FDA-Public Use
  Company Number: US-ALEXION PHARMACEUTICALS INC.-A201200774

PATIENT
  Age: 51 Year
  Sex: Male

DRUGS (1)
  1. SOLIRIS [Suspect]
     Indication: HAEMOLYTIC URAEMIC SYNDROME
     Dosage: UNK
     Route: 042

REACTIONS (5)
  - Slow response to stimuli [Not Recovered/Not Resolved]
  - Renal failure acute [Unknown]
  - Convulsion [Unknown]
  - Rhabdomyolysis [Unknown]
  - Alcohol withdrawal syndrome [Unknown]
